FAERS Safety Report 22070758 (Version 1)
Quarter: 2023Q1

REPORT INFORMATION
  Report Type: Spontaneous
  Country: DE (occurrence: DE)
  Receive Date: 20230307
  Receipt Date: 20230307
  Transmission Date: 20230417
  Serious: Yes (Death)
  Sender: FDA-Public Use
  Company Number: DE-SHIONOGI, INC-2023000459

PATIENT
  Age: 18 Year
  Sex: Female

DRUGS (12)
  1. FETROJA [Suspect]
     Active Substance: CEFIDEROCOL SULFATE TOSYLATE
     Indication: Haematological infection
     Route: 065
  2. FETROJA [Suspect]
     Active Substance: CEFIDEROCOL SULFATE TOSYLATE
     Indication: Abdominal infection
  3. FETROJA [Suspect]
     Active Substance: CEFIDEROCOL SULFATE TOSYLATE
     Indication: Pseudomonas infection
  4. FETROJA [Suspect]
     Active Substance: CEFIDEROCOL SULFATE TOSYLATE
     Indication: Sepsis
  5. MEROPENEM [Concomitant]
     Active Substance: MEROPENEM
     Indication: Haematological infection
     Route: 065
  6. MEROPENEM [Concomitant]
     Active Substance: MEROPENEM
     Indication: Abdominal infection
  7. MEROPENEM [Concomitant]
     Active Substance: MEROPENEM
     Indication: Pseudomonas infection
  8. MEROPENEM [Concomitant]
     Active Substance: MEROPENEM
     Indication: Sepsis
  9. AMIKACIN [Concomitant]
     Active Substance: AMIKACIN
     Indication: Haematological infection
     Route: 065
  10. AMIKACIN [Concomitant]
     Active Substance: AMIKACIN
     Indication: Abdominal infection
  11. AMIKACIN [Concomitant]
     Active Substance: AMIKACIN
     Indication: Pseudomonas infection
  12. AMIKACIN [Concomitant]
     Active Substance: AMIKACIN
     Indication: Sepsis

REACTIONS (1)
  - Death [Fatal]
